FAERS Safety Report 14654119 (Version 1)
Quarter: 2018Q1

REPORT INFORMATION
  Report Type: Report from Study
  Country: ES (occurrence: ES)
  Receive Date: 20180319
  Receipt Date: 20180319
  Transmission Date: 20180509
  Serious: Yes (Other)
  Sender: FDA-Public Use
  Company Number: ES-VELOXIS PHARMACEUTICALS-2044051

PATIENT
  Age: 59 Year
  Sex: Male
  Weight: 93.3 kg

DRUGS (6)
  1. ADOPORT [Suspect]
     Active Substance: TACROLIMUS
  2. ENVARSUS XR [Suspect]
     Active Substance: TACROLIMUS
     Route: 048
     Dates: start: 20170214
  3. ENVARSUS XR [Suspect]
     Active Substance: TACROLIMUS
     Indication: IMMUNOSUPPRESSION
     Route: 048
  4. ENVARSUS XR [Suspect]
     Active Substance: TACROLIMUS
     Route: 048
     Dates: start: 20170217
  5. ENVARSUS XR [Suspect]
     Active Substance: TACROLIMUS
     Route: 048
     Dates: start: 20170217
  6. ENVARSUS XR [Suspect]
     Active Substance: TACROLIMUS
     Route: 048
     Dates: start: 20170217

REACTIONS (5)
  - Ascites [Recovered/Resolved]
  - Tremor [Recovered/Resolved]
  - Pruritus [Recovered/Resolved]
  - Cholestasis [Unknown]
  - Renal impairment [Not Recovered/Not Resolved]

NARRATIVE: CASE EVENT DATE: 20170211
